FAERS Safety Report 18182525 (Version 2)
Quarter: 2020Q3

REPORT INFORMATION
  Report Type: Spontaneous
  Country: US (occurrence: US)
  Receive Date: 20200821
  Receipt Date: 20200930
  Transmission Date: 20201103
  Serious: Yes (Death, Other)
  Sender: FDA-Public Use
  Company Number: US-SHIRE-US202026739

PATIENT
  Age: 89 Year
  Sex: Female

DRUGS (1)
  1. PENTASA [Suspect]
     Active Substance: MESALAMINE
     Indication: CROHN^S DISEASE
     Dosage: 250 MILLIGRAM, 16 TABLETS A DAY
     Route: 065

REACTIONS (2)
  - Fall [Unknown]
  - Cerebral haemorrhage [Fatal]
